FAERS Safety Report 17228279 (Version 1)
Quarter: 2019Q4

REPORT INFORMATION
  Report Type: Spontaneous
  Country: US (occurrence: US)
  Receive Date: 20191210
  Receipt Date: 20191210
  Transmission Date: 20200122
  Serious: Yes (Death)
  Sender: FDA-Public Use
  Company Number: None

PATIENT
  Age: 58 Year
  Sex: Male

DRUGS (13)
  1. XELJANZ XR [Suspect]
     Active Substance: TOFACITINIB CITRATE
     Indication: CARDIOVASCULAR DISORDER
     Route: 048
     Dates: start: 20190723, end: 20191207
  2. MYCOPHENOLAT [Concomitant]
     Active Substance: MYCOPHENOLATE MOFETIL
  3. CLOPIDOGREL [Concomitant]
     Active Substance: CLOPIDOGREL BISULFATE
  4. METOCLOPRAM [Concomitant]
     Active Substance: METOCLOPRAMIDE
  5. OXYCODONE AND ACETAMINOPHEN [Concomitant]
     Active Substance: ACETAMINOPHEN\OXYCODONE HYDROCHLORIDE
  6. GABAPENTIN. [Concomitant]
     Active Substance: GABAPENTIN
  7. MORPHINE SUL [Concomitant]
     Active Substance: MORPHINE SULFATE
  8. POLYETH GLYC POW [Concomitant]
  9. ROSUVASTATIN. [Concomitant]
     Active Substance: ROSUVASTATIN
  10. ONDANSETRON [Concomitant]
     Active Substance: ONDANSETRON
  11. PANTOPRAZOLE [Concomitant]
     Active Substance: PANTOPRAZOLE
  12. PROMETHAZINE [Concomitant]
     Active Substance: PROMETHAZINE HYDROCHLORIDE
  13. MOVANTIK [Concomitant]
     Active Substance: NALOXEGOL OXALATE

REACTIONS (1)
  - Death [None]

NARRATIVE: CASE EVENT DATE: 20191207
